FAERS Safety Report 17065556 (Version 2)
Quarter: 2019Q4

REPORT INFORMATION
  Report Type: Spontaneous
  Country: GR (occurrence: GR)
  Receive Date: 20191122
  Receipt Date: 20191202
  Transmission Date: 20200122
  Serious: Yes (Hospitalization)
  Sender: FDA-Public Use
  Company Number: GR-MYLANLABS-2019M1111987

PATIENT
  Age: 59 Year
  Sex: Female

DRUGS (5)
  1. FILICINE [Concomitant]
     Indication: BLOOD FOLATE DECREASED
     Dosage: UNK
  2. CLOPIDOGREL [Concomitant]
     Active Substance: CLOPIDOGREL BISULFATE
     Indication: BLOOD FOLATE DECREASED
     Dosage: UNK
  3. SINTROM [Suspect]
     Active Substance: ACENOCOUMAROL
     Indication: ANTICOAGULANT THERAPY
     Dosage: UNK
     Route: 065
  4. CARVEDILOL. [Suspect]
     Active Substance: CARVEDILOL
     Indication: SINUS TACHYCARDIA
     Dosage: UNK
     Route: 065
  5. RIVAROXABAN [Suspect]
     Active Substance: RIVAROXABAN
     Indication: ANTICOAGULANT THERAPY
     Dosage: UNK
     Route: 065

REACTIONS (17)
  - Chest pain [Unknown]
  - Coronary artery disease [Unknown]
  - Blood homocysteine increased [Unknown]
  - Coronary artery stenosis [Unknown]
  - Palpitations [Unknown]
  - Dyspnoea [Unknown]
  - Respiratory tract infection [Unknown]
  - Product use in unapproved indication [Unknown]
  - Left ventricular dilatation [Unknown]
  - Blood folate decreased [Unknown]
  - Syncope [Unknown]
  - Electrocardiogram ST segment depression [Recovered/Resolved]
  - Therapy non-responder [Unknown]
  - Mitral valve incompetence [Unknown]
  - Sinus tachycardia [Unknown]
  - Electrocardiogram ST segment elevation [Unknown]
  - Fatigue [Unknown]
